FAERS Safety Report 13713768 (Version 1)
Quarter: 2017Q3

REPORT INFORMATION
  Report Type: Spontaneous
  Country: US (occurrence: US)
  Receive Date: 20170704
  Receipt Date: 20170704
  Transmission Date: 20171127
  Serious: Yes (Other)
  Sender: FDA-Public Use
  Company Number: US-ZYDUS-015677

PATIENT
  Age: 81 Year
  Sex: Male

DRUGS (1)
  1. AMIODARONE [Suspect]
     Active Substance: AMIODARONE
     Indication: CORONARY ARTERY DISEASE
     Route: 065

REACTIONS (5)
  - Chest pain [Unknown]
  - Pulmonary fibrosis [Unknown]
  - Haemoptysis [Unknown]
  - Systemic-pulmonary artery shunt [Unknown]
  - Pulmonary toxicity [Unknown]
